FAERS Safety Report 5468207-2 (Version None)
Quarter: 2007Q3

REPORT INFORMATION
  Report Type: 
  Country: None (occurrence: None)
  Receive Date: 20070924
  Receipt Date: 20070910
  Transmission Date: 20080115
  Serious: Yes (Other)
  Sender: FDA-Public Use
  Company Number: B0487716A

PATIENT
  Sex: Female

DRUGS (4)
  1. VALACYCLOVIR [Suspect]
     Indication: CYTOMEGALOVIRUS INFECTION
     Dosage: 2 GRAM (S) FOUR TIMES PER DAY/ ORAL
     Route: 048
  2. LIGNOCAINE HYDROCHLORIDE [Concomitant]
  3. MIFEPRISTONE [Concomitant]
  4. MISOPROSTOL [Concomitant]

REACTIONS (4)
  - ABORTION INDUCED [None]
  - BRAIN DAMAGE [None]
  - DRUG EXPOSURE DURING PREGNANCY [None]
  - FOETAL DISORDER [None]
